FAERS Safety Report 4511561-6 (Version None)
Quarter: 2004Q4

REPORT INFORMATION
  Report Type: 
  Country: None (occurrence: None)
  Receive Date: 20041129
  Receipt Date: 20040928
  Transmission Date: 20050328
  Serious: No
  Sender: FDA-Public Use
  Company Number: US-BRISTOL-MYERS SQUIBB COMPANY-12715595

PATIENT
  Age: 52 Year
  Sex: Female
  Weight: 52 kg

DRUGS (3)
  1. ABILIFY [Suspect]
     Indication: SCHIZOAFFECTIVE DISORDER
     Dosage: INITIATED AT 5 MG/DAY IN APR-2004; INC TO 10 MG/DAY IN AUG-2004.
     Route: 048
     Dates: start: 20040401
  2. WELLBUTRIN [Concomitant]
  3. KLONOPIN [Concomitant]

REACTIONS (2)
  - FOOD CRAVING [None]
  - HYPERTROPHY BREAST [None]
